FAERS Safety Report 19746269 (Version 1)
Quarter: 2021Q3

REPORT INFORMATION
  Report Type: Spontaneous
  Country: RU (occurrence: RU)
  Receive Date: 20210826
  Receipt Date: 20210826
  Transmission Date: 20211014
  Serious: Yes (Death, Other)
  Sender: FDA-Public Use
  Company Number: RU-AMGEN-RUSSP2021126768

PATIENT

DRUGS (5)
  1. BUSERELIN [Concomitant]
     Active Substance: BUSERELIN
     Dosage: UNK
  2. LEUPRORELIN [Concomitant]
     Active Substance: LEUPROLIDE ACETATE
     Dosage: UNK
  3. PROLIA [Suspect]
     Active Substance: DENOSUMAB
     Indication: PROSTATE CANCER
     Dosage: UNK
     Route: 065
  4. GOSERELIN [Concomitant]
     Active Substance: GOSERELIN
     Dosage: UNK
  5. TRIPTORELIN [Concomitant]
     Active Substance: TRIPTORELIN
     Dosage: UNK

REACTIONS (8)
  - Hyperhidrosis [Unknown]
  - Gynaecomastia [Unknown]
  - Blood testosterone increased [Unknown]
  - Hypertension [Unknown]
  - Prostate cancer [Unknown]
  - Hot flush [Unknown]
  - Asthenia [Unknown]
  - Death [Fatal]
